FAERS Safety Report 15786250 (Version 1)
Quarter: 2019Q1

REPORT INFORMATION
  Report Type: Spontaneous
  Country: TR (occurrence: TR)
  Receive Date: 20190103
  Receipt Date: 20190103
  Transmission Date: 20190417
  Serious: Yes (Death, Other)
  Sender: FDA-Public Use
  Company Number: TR-AMGEN-TURSP2018187373

PATIENT
  Age: 55 Year
  Sex: Male

DRUGS (2)
  1. CARFILZOMIB [Suspect]
     Active Substance: CARFILZOMIB
     Indication: PLASMA CELL MYELOMA
     Dosage: 15 MG/M2, (DAYS 1, 2, 8, 9, 15, AND 16) IN CYCLE 1
     Route: 065
  2. DEXAMETHASONE. [Concomitant]
     Active Substance: DEXAMETHASONE
     Indication: PLASMA CELL MYELOMA
     Dosage: UNK

REACTIONS (12)
  - Pulmonary oedema [Unknown]
  - Peripheral swelling [Unknown]
  - Metabolic acidosis [Unknown]
  - Hypotension [Unknown]
  - Arrhythmia [Unknown]
  - Acute kidney injury [Unknown]
  - General physical health deterioration [Unknown]
  - Death [Fatal]
  - Generalised oedema [Unknown]
  - Asthenia [Unknown]
  - Tumour lysis syndrome [Unknown]
  - Oedema peripheral [Unknown]
